FAERS Safety Report 8600812-4 (Version None)
Quarter: 2012Q3

REPORT INFORMATION
  Report Type: 
  Country: None (occurrence: None)
  Receive Date: 20120817
  Receipt Date: 20120810
  Transmission Date: 20120928
  Serious: No
  Sender: FDA-Public Use
  Company Number: US-BAYER-2012-082594

PATIENT
  Age: 83 Year
  Sex: Male
  Weight: 83.9 kg

DRUGS (6)
  1. ALEVE (CAPLET) [Suspect]
     Indication: ANALGESIC THERAPY
     Dosage: 1 DF, QD
     Route: 048
  2. POTASSIUM [Concomitant]
  3. ACIPHEX [Concomitant]
  4. LIPITOR [Concomitant]
  5. LASIX [Concomitant]
  6. TOPROL-XL [Concomitant]

REACTIONS (1)
  - PAIN [None]
